FAERS Safety Report 5549817-0 (Version None)
Quarter: 2007Q4

REPORT INFORMATION
  Report Type: 
  Country: None (occurrence: None)
  Receive Date: 20071207
  Receipt Date: 20071207
  Transmission Date: 20080405
  Serious: No
  Sender: FDA-Public Use
  Company Number: None

PATIENT
  Age: 18 Year
  Sex: Male
  Weight: 68.0396 kg

DRUGS (3)
  1. WELLBUTRIN XL [Suspect]
     Indication: BIPOLAR DISORDER
     Dosage: 150 QD PO
     Route: 048
     Dates: start: 20070820, end: 20071206
  2. WELLBUTRIN XL [Suspect]
     Indication: DEPRESSION
     Dosage: 150 QD PO
     Route: 048
     Dates: start: 20070820, end: 20071206
  3. SEROQUEL [Concomitant]

REACTIONS (1)
  - ALOPECIA [None]
